FAERS Safety Report 9587109 (Version 2)
Quarter: 2013Q4

REPORT INFORMATION
  Report Type: Spontaneous
  Country: US (occurrence: US)
  Receive Date: 20131003
  Receipt Date: 20131024
  Transmission Date: 20140711
  Serious: Yes (Life-Threatening, Hospitalization, Other)
  Sender: FDA-Public Use
  Company Number: US-009507513-1310USA000877

PATIENT
  Age: 32 Year
  Sex: Female
  Weight: 63.39 kg

DRUGS (1)
  1. NUVARING [Suspect]
     Indication: CONTRACEPTION
     Dosage: UNK
     Route: 067
     Dates: start: 20130218, end: 2013

REACTIONS (1)
  - Cerebrovascular accident [Recovered/Resolved]
